FAERS Safety Report 8429548-X (Version None)
Quarter: 2012Q2

REPORT INFORMATION
  Report Type: 
  Country: None (occurrence: None)
  Receive Date: 20120604
  Receipt Date: 20120522
  Transmission Date: 20120825
  Serious: Yes (Death)
  Sender: FDA-Public Use
  Company Number: 2012MA000523

PATIENT
  Age: 81 Year
  Sex: Female

DRUGS (11)
  1. ACETAMINOPHEN [Concomitant]
  2. METFORMIN HYDROCHLORIDE [Suspect]
     Indication: TYPE 2 DIABETES MELLITUS
     Dosage: 850 MG;TID;PO
     Route: 048
  3. MS CONTIN [Concomitant]
  4. DULOXETIME HYDROCHLORIDE [Concomitant]
  5. GLICLAZIDE [Concomitant]
  6. FUROSEMIDE [Concomitant]
  7. LANSOPRAZOLE [Concomitant]
  8. SIMVASTATIN [Concomitant]
  9. CAPTOPRIL [Concomitant]
  10. LEVOTHYROXINE SODIUM [Concomitant]
  11. ALLOPURINOL [Concomitant]

REACTIONS (6)
  - METABOLIC ACIDOSIS [None]
  - ABDOMINAL DISCOMFORT [None]
  - DEHYDRATION [None]
  - RENAL FAILURE ACUTE [None]
  - LACTIC ACIDOSIS [None]
  - CONTINUOUS HAEMODIAFILTRATION [None]
